FAERS Safety Report 19260038 (Version 1)
Quarter: 2021Q2

REPORT INFORMATION
  Report Type: Spontaneous
  Country: US (occurrence: US)
  Receive Date: 20210514
  Receipt Date: 20210514
  Transmission Date: 20210717
  Serious: No
  Sender: FDA-Public Use
  Company Number: US-JAZZ-2021-US-000376

PATIENT
  Sex: Female

DRUGS (2)
  1. ARMODAFINIL. [Concomitant]
     Active Substance: ARMODAFINIL
  2. XYREM [Suspect]
     Active Substance: SODIUM OXYBATE
     Indication: HYPERSOMNIA
     Dosage: UNKNOWN DOSE AND DURATION
     Route: 048

REACTIONS (2)
  - Off label use [Unknown]
  - Panic attack [Recovered/Resolved]
